FAERS Safety Report 8365864-8 (Version None)
Quarter: 2012Q2

REPORT INFORMATION
  Report Type: 
  Country: None (occurrence: None)
  Receive Date: 20120515
  Receipt Date: 20120502
  Transmission Date: 20120825
  Serious: Yes (Life-Threatening, Other)
  Sender: FDA-Public Use
  Company Number: 2012P1010574

PATIENT
  Age: 40 Year
  Sex: Female

DRUGS (1)
  1. FAMOTIDINE [Suspect]
     Indication: PREMEDICATION

REACTIONS (2)
  - ANAPHYLACTIC SHOCK [None]
  - MATERNAL EXPOSURE DURING DELIVERY [None]
